FAERS Safety Report 6276137-1 (Version None)
Quarter: 2009Q3

REPORT INFORMATION
  Report Type: 
  Country: None (occurrence: None)
  Receive Date: 20090720
  Receipt Date: 20090720
  Transmission Date: 20100115
  Serious: No
  Sender: FDA-Public Use
  Company Number: None

PATIENT
  Sex: Male
  Weight: 27.2158 kg

DRUGS (2)
  1. ETHOSUXIMIDE [Suspect]
     Indication: EPILEPSY
     Dosage: 250MG ONCE PO Q AM AND Q NOON, TWICE QHS PO
     Route: 048
     Dates: start: 20090401, end: 20090701
  2. LEVETIRACETAM [Suspect]
     Indication: EPILEPSY
     Dosage: 250MG ONCE QAM AND TWICE QHS PO
     Route: 048
     Dates: start: 20090401, end: 20090701

REACTIONS (3)
  - CONDITION AGGRAVATED [None]
  - CONVULSION [None]
  - PRODUCT SUBSTITUTION ISSUE [None]
